FAERS Safety Report 9377502 (Version 2)
Quarter: 2013Q4

REPORT INFORMATION
  Report Type: Report from Study
  Country: JP (occurrence: JP)
  Receive Date: 20130701
  Receipt Date: 20131007
  Transmission Date: 20140711
  Serious: Yes (Death)
  Sender: FDA-Public Use
  Company Number: JP-SANOFI-AVENTIS-2013SA065653

PATIENT
  Sex: 0

DRUGS (3)
  1. FLUOROURACIL [Suspect]
     Indication: NEOPLASM MALIGNANT
     Dosage: ADMINISTERED FOR 5 DAYS
     Route: 065
  2. CISPLATIN [Suspect]
     Indication: NEOPLASM MALIGNANT
     Route: 065
  3. TAXOTERE [Suspect]
     Indication: NEOPLASM MALIGNANT
     Route: 065

REACTIONS (2)
  - Febrile neutropenia [Fatal]
  - Septic shock [Fatal]
